FAERS Safety Report 5266753-8 (Version None)
Quarter: 2007Q1

REPORT INFORMATION
  Report Type: 
  Country: None (occurrence: None)
  Receive Date: 20070307
  Receipt Date: 20070220
  Transmission Date: 20070707
  Serious: Yes (Hospitalization)
  Sender: FDA-Public Use
  Company Number: B0460510A

PATIENT
  Sex: Female

DRUGS (3)
  1. CEFAZOLIN SODIUM [Suspect]
     Dosage: SEE IMAGE
     Route: 042
  2. AUGMENTIN '125' [Suspect]
     Indication: CELLULITIS
     Dosage: 875 MG TWICE PER DAY ORAL
     Route: 048
  3. ANALGESIC [Concomitant]

REACTIONS (17)
  - BLOOD ALKALINE PHOSPHATASE INCREASED [None]
  - BLOOD POTASSIUM DECREASED [None]
  - BOWEL SOUNDS ABNORMAL [None]
  - CAESAREAN SECTION [None]
  - CHEST DISCOMFORT [None]
  - CHILLS [None]
  - CLOSTRIDIUM DIFFICILE COLITIS [None]
  - CONSTIPATION [None]
  - DYSPNOEA [None]
  - HAEMOGLOBIN DECREASED [None]
  - ILEUS [None]
  - LARGE INTESTINAL HAEMORRHAGE [None]
  - NAUSEA [None]
  - PSEUDOMEMBRANOUS COLITIS [None]
  - RECTAL TENESMUS [None]
  - RESPIRATORY RATE INCREASED [None]
  - SMALL INTESTINAL OBSTRUCTION [None]
